FAERS Safety Report 17285212 (Version 4)
Quarter: 2020Q2

REPORT INFORMATION
  Report Type: Report from Study
  Country: None (occurrence: AU)
  Receive Date: 20200117
  Receipt Date: 20200407
  Transmission Date: 20200713
  Serious: Yes (Hospitalization)
  Sender: FDA-Public Use
  Company Number: AU-ABBVIE-20P-008-3228267-00

PATIENT
  Age: 54 Year
  Sex: Male
  Weight: 84.2 kg

DRUGS (24)
  1. VENETOCLAX. [Suspect]
     Active Substance: VENETOCLAX
     Indication: ACUTE LYMPHOCYTIC LEUKAEMIA RECURRENT
     Route: 048
     Dates: start: 20191230, end: 20191230
  2. VENETOCLAX. [Suspect]
     Active Substance: VENETOCLAX
     Route: 048
     Dates: start: 20191231, end: 20200112
  3. DEXAMETHASONE. [Suspect]
     Active Substance: DEXAMETHASONE
     Indication: ACUTE LYMPHOCYTIC LEUKAEMIA RECURRENT
     Route: 048
     Dates: start: 20191230, end: 20200103
  4. COLOXYL AND SENNA [Concomitant]
     Indication: CONSTIPATION
     Route: 048
     Dates: start: 2018
  5. PANTOPRAZOLE [Concomitant]
     Active Substance: PANTOPRAZOLE
     Indication: GASTROOESOPHAGEAL REFLUX PROPHYLAXIS
     Route: 048
     Dates: start: 2019
  6. VENETOCLAX. [Suspect]
     Active Substance: VENETOCLAX
     Route: 048
     Dates: start: 20200115
  7. THROMBOTROL [Concomitant]
     Indication: ANTITHROMBIN III DEFICIENCY
     Dosage: 1000-3000 IU
     Route: 042
     Dates: start: 20200101
  8. CHOLECALCIFEROL [Concomitant]
     Active Substance: CHOLECALCIFEROL
     Indication: OSTEOPOROSIS PROPHYLAXIS
     Route: 048
     Dates: start: 201804
  9. VALTREX [Concomitant]
     Active Substance: VALACYCLOVIR HYDROCHLORIDE
     Indication: ANTIVIRAL PROPHYLAXIS
     Route: 048
     Dates: start: 201803
  10. BACTRIM [Concomitant]
     Active Substance: SULFAMETHOXAZOLE\TRIMETHOPRIM
     Indication: ANTIFUNGAL PROPHYLAXIS
     Dosage: 160/800  TWICE A DAY ON MON AND THURS
     Route: 048
     Dates: start: 201803
  11. POLYVISC [Concomitant]
     Indication: DRY EYE
     Route: 061
     Dates: start: 201912
  12. N-ACETYLCYSTEINE [Concomitant]
     Active Substance: ACETYLCYSTEINE
     Indication: DRY EYE
     Route: 061
     Dates: start: 201912
  13. PLATELETS [Concomitant]
     Active Substance: HUMAN PLATELET, ALLOGENIC
     Indication: PRODUCT USED FOR UNKNOWN INDICATION
     Route: 042
     Dates: start: 20200109, end: 20200109
  14. ABT-263 [Suspect]
     Active Substance: NAVITOCLAX
     Indication: ACUTE LYMPHOCYTIC LEUKAEMIA RECURRENT
     Route: 048
     Dates: start: 20200101, end: 20200112
  15. DEXAMETHASONE. [Suspect]
     Active Substance: DEXAMETHASONE
     Route: 048
     Dates: start: 20200120, end: 20200124
  16. VINCRISTINE [Suspect]
     Active Substance: VINCRISTINE
     Indication: ACUTE LYMPHOCYTIC LEUKAEMIA RECURRENT
     Route: 042
     Dates: start: 20191230, end: 20200106
  17. PEGASPARAGINASE [Suspect]
     Active Substance: PEGASPARGASE
     Dosage: 1250 IU/M2
     Route: 042
     Dates: start: 20200120, end: 20200120
  18. ABT-263 [Suspect]
     Active Substance: NAVITOCLAX
     Route: 048
     Dates: start: 20200115
  19. VINCRISTINE [Suspect]
     Active Substance: VINCRISTINE
     Route: 042
     Dates: start: 20200120
  20. PEGASPARAGINASE [Suspect]
     Active Substance: PEGASPARGASE
     Indication: ACUTE LYMPHOCYTIC LEUKAEMIA RECURRENT
     Dosage: 1250 IU/M2
     Route: 042
     Dates: start: 20191230, end: 20191230
  21. REFRESH CELLUVISC [Concomitant]
     Active Substance: CARBOXYMETHYLCELLULOSE SODIUM
     Indication: DRY EYE
     Route: 061
     Dates: start: 201912
  22. FLUOROMETHOLONE. [Concomitant]
     Active Substance: FLUOROMETHOLONE
     Indication: DRY EYE
     Route: 061
     Dates: start: 201912
  23. NORMAL SALINE SOLUTION (0.9% SODIUM CHLORIDE) [Concomitant]
     Indication: PROPHYLAXIS
     Route: 042
     Dates: start: 20191229, end: 20200102
  24. AMBISOME [Concomitant]
     Active Substance: AMPHOTERICIN B
     Indication: ANTIFUNGAL PROPHYLAXIS
     Route: 030
     Dates: start: 20191231

REACTIONS (3)
  - Febrile neutropenia [Recovered/Resolved]
  - Klebsiella infection [Recovered/Resolved]
  - Raoultella ornithinolytica infection [Recovered/Resolved]

NARRATIVE: CASE EVENT DATE: 20200109
